FAERS Safety Report 6354009-1 (Version None)
Quarter: 2009Q3

REPORT INFORMATION
  Report Type: 
  Country: None (occurrence: None)
  Receive Date: 20090914
  Receipt Date: 20090831
  Transmission Date: 20100115
  Serious: Yes (Other)
  Sender: FDA-Public Use
  Company Number: JP-RANBAXY-2009RR-27675

PATIENT
  Age: 71 Year
  Sex: Male

DRUGS (5)
  1. FENOFIBRATE [Suspect]
     Indication: HYPERLIPIDAEMIA
     Dosage: 67 MG, QD
     Route: 048
     Dates: start: 20090331
  2. WARFARIN SODIUM [Suspect]
     Dosage: UNK
     Route: 065
     Dates: start: 20090331
  3. TAMSULOSIN HYDROCHLORIDE [Concomitant]
     Dosage: UNK
     Route: 065
     Dates: start: 20090331
  4. ENALAPRIL MALEATE [Concomitant]
     Dosage: UNK
     Route: 065
     Dates: start: 20090331
  5. NICORANDIL [Concomitant]
     Dosage: UNK
     Route: 065
     Dates: start: 20090331

REACTIONS (3)
  - DRUG INTERACTION [None]
  - HAEMATOMA [None]
  - HAEMATURIA [None]
